FAERS Safety Report 9580649 (Version 1)
Quarter: 2013Q3

REPORT INFORMATION
  Report Type: Spontaneous
  Country: US (occurrence: None)
  Receive Date: 20130916
  Receipt Date: 20130916
  Transmission Date: 20140515
  Serious: Yes (Hospitalization)
  Sender: FDA-Public Use
  Company Number: JPI-P-025829

PATIENT
  Age: 36 Year
  Sex: Female
  Weight: 68.04 kg

DRUGS (8)
  1. XYREM (500 MILLIGRAM/MILLILITERS, SOLUTION) (SODIUM OXYBATE) [Suspect]
     Indication: NARCOLEPSY
     Route: 048
     Dates: start: 20121009, end: 201210
  2. XYREM (500 MILLIGRAM/MILLILITERS, SOLUTION) (SODIUM OXYBATE) [Suspect]
     Indication: FIBROMYALGIA
     Route: 048
     Dates: start: 20121009, end: 201210
  3. XYREM (500 MILLIGRAM/MILLILITERS, SOLUTION) (SODIUM OXYBATE) [Suspect]
     Indication: SOMNOLENCE
     Route: 048
     Dates: start: 20121009, end: 201210
  4. DETLIAN [Concomitant]
  5. DULOXETINE [Concomitant]
  6. ARIPIPRAZOLE [Concomitant]
  7. VALACICLOVIR [Concomitant]
  8. BUPROPION [Concomitant]

REACTIONS (6)
  - Migraine [None]
  - Condition aggravated [None]
  - Insomnia [None]
  - Middle insomnia [None]
  - Neck pain [None]
  - Musculoskeletal discomfort [None]
